FAERS Safety Report 14736038 (Version 2)
Quarter: 2018Q2

REPORT INFORMATION
  Report Type: Report from Study
  Country: US (occurrence: US)
  Receive Date: 20180409
  Receipt Date: 20180622
  Transmission Date: 20180711
  Serious: Yes (Hospitalization, Other)
  Sender: FDA-Public Use
  Company Number: US-JNJFOC-20180406988

PATIENT
  Age: 59 Year
  Sex: Male

DRUGS (12)
  1. METOLAZONE. [Concomitant]
     Active Substance: METOLAZONE
  2. SOTALOL. [Concomitant]
     Active Substance: SOTALOL
  3. DULOXETINE. [Concomitant]
     Active Substance: DULOXETINE
  4. POTASSIUM CHLORIDE. [Concomitant]
     Active Substance: POTASSIUM CHLORIDE
  5. ASPIRIN. [Concomitant]
     Active Substance: ASPIRIN
  6. IMBRUVICA [Suspect]
     Active Substance: IBRUTINIB
     Indication: CHRONIC LYMPHOCYTIC LEUKAEMIA
     Route: 065
     Dates: end: 201602
  7. SINGULAIR [Concomitant]
     Active Substance: MONTELUKAST SODIUM
  8. TORSEMIDE. [Concomitant]
     Active Substance: TORSEMIDE
  9. IMBRUVICA [Suspect]
     Active Substance: IBRUTINIB
     Indication: CHRONIC LYMPHOCYTIC LEUKAEMIA
     Route: 065
     Dates: start: 20180131, end: 20180216
  10. ELIQUIS [Concomitant]
     Active Substance: APIXABAN
  11. MAGNESIUM [Concomitant]
     Active Substance: MAGNESIUM
  12. OXYCODONE [Concomitant]
     Active Substance: OXYCODONE

REACTIONS (3)
  - Pericardial effusion [Unknown]
  - Atrial fibrillation [Not Recovered/Not Resolved]
  - Drug hypersensitivity [Unknown]

NARRATIVE: CASE EVENT DATE: 20180216
